FAERS Safety Report 15139501 (Version 1)
Quarter: 2018Q3

REPORT INFORMATION
  Report Type: Spontaneous
  Country: DE (occurrence: DE)
  Receive Date: 20180713
  Receipt Date: 20180713
  Transmission Date: 20181010
  Serious: Yes (Other)
  Sender: FDA-Public Use
  Company Number: DE-TEVA-2018-DE-922526

PATIENT
  Age: 69 Year
  Sex: Male

DRUGS (3)
  1. FLEBOGAMMA [Interacting]
     Active Substance: HUMAN IMMUNOGLOBULIN G
     Indication: NEURITIS
     Dosage: 100 ML BOTTLE, AT EVERY TREATMENT 20 BOTTLES ? FINISHED AFTER THREE APPLICATIONS
     Dates: start: 201701
  2. MYLEPSINUM [Suspect]
     Active Substance: PRIMIDONE
     Indication: EPILEPSY
     Dosage: VARYING DOSAGES
     Route: 048
     Dates: start: 1962
  3. TOPIRAMAT [Suspect]
     Active Substance: TOPIRAMATE
     Route: 048
     Dates: start: 2008

REACTIONS (4)
  - Acarodermatitis [Unknown]
  - Drug interaction [Unknown]
  - Dermatitis exfoliative [Unknown]
  - Pruritus [Unknown]
